FAERS Safety Report 18813391 (Version 1)
Quarter: 2021Q1

REPORT INFORMATION
  Report Type: Report from Study
  Country: None (occurrence: CA)
  Receive Date: 20210201
  Receipt Date: 20210201
  Transmission Date: 20210419
  Serious: Yes (Disabling)
  Sender: FDA-Public Use
  Company Number: CA-ABBVIE-21K-028-3752917-00

PATIENT
  Sex: Female

DRUGS (1)
  1. HUMIRA [Suspect]
     Active Substance: ADALIMUMAB
     Indication: RHEUMATOID ARTHRITIS
     Route: 058
     Dates: start: 20200814, end: 20200814

REACTIONS (2)
  - Abdominal pain upper [Not Recovered/Not Resolved]
  - Deformity [Not Recovered/Not Resolved]

NARRATIVE: CASE EVENT DATE: 2020
